FAERS Safety Report 5049986-5 (Version None)
Quarter: 2006Q3

REPORT INFORMATION
  Report Type: 
  Country: None (occurrence: None)
  Receive Date: 20060707
  Receipt Date: 20060626
  Transmission Date: 20061208
  Serious: Yes (Hospitalization)
  Sender: FDA-Public Use
  Company Number: 234025K06USA

PATIENT
  Age: 33 Year
  Sex: Female
  Weight: 104 kg

DRUGS (6)
  1. REBIF [Suspect]
     Indication: MULTIPLE SCLEROSIS
     Dosage: 44 MCG, 3 IN 1 WEEKS, SUBCUTANEOUS
     Route: 058
     Dates: start: 20051101
  2. ZANAFLEX [Concomitant]
  3. TOPAMAX [Concomitant]
  4. LEXAPRO [Concomitant]
  5. TRIAMTERENE/HYDROCHLOROTHIAZIDE (DYAZIDE) [Concomitant]
  6. SOLU-MEDROL [Concomitant]

REACTIONS (5)
  - CHILLS [None]
  - HEADACHE [None]
  - SEPSIS [None]
  - URINARY RETENTION [None]
  - URINARY TRACT INFECTION [None]
